FAERS Safety Report 13940402 (Version 2)
Quarter: 2017Q3

REPORT INFORMATION
  Report Type: Spontaneous
  Country: US (occurrence: US)
  Receive Date: 20170906
  Receipt Date: 20170908
  Transmission Date: 20171127
  Serious: Yes (Hospitalization, Other)
  Sender: FDA-Public Use
  Company Number: US-PFIZER INC-2017376532

PATIENT
  Age: 28 Year
  Sex: Male

DRUGS (6)
  1. PREDNISOLONE. [Suspect]
     Active Substance: PREDNISOLONE
     Indication: NECROTISING MYOSITIS
  2. IMURAN [Concomitant]
     Active Substance: AZATHIOPRINE
     Dosage: 100 MG, DAILY
  3. SOLU-MEDROL [Suspect]
     Active Substance: METHYLPREDNISOLONE SODIUM SUCCINATE
     Indication: SUBACUTE CUTANEOUS LUPUS ERYTHEMATOSUS
  4. PREDNISOLONE. [Suspect]
     Active Substance: PREDNISOLONE
     Indication: SUBACUTE CUTANEOUS LUPUS ERYTHEMATOSUS
     Dosage: 40 MG, DAILY
     Route: 048
  5. SOLU-MEDROL [Suspect]
     Active Substance: METHYLPREDNISOLONE SODIUM SUCCINATE
     Indication: NECROTISING MYOSITIS
     Dosage: 1 G, UNK
     Route: 042
  6. IMURAN [Concomitant]
     Active Substance: AZATHIOPRINE
     Dosage: 50 MG, DAILY

REACTIONS (2)
  - Suicidal ideation [Recovering/Resolving]
  - Paranoia [Recovering/Resolving]
